FAERS Safety Report 25934191 (Version 1)
Quarter: 2025Q4

REPORT INFORMATION
  Report Type: Spontaneous
  Country: TT (occurrence: TT)
  Receive Date: 20251017
  Receipt Date: 20251017
  Transmission Date: 20260118
  Serious: Yes (Other)
  Sender: GLAXOSMITHKLINE
  Company Number: TT-GSK-TT2025AMR130349

PATIENT
  Age: 88 Year
  Sex: Male

DRUGS (1)
  1. SERETIDE [Suspect]
     Active Substance: FLUTICASONE PROPIONATE\SALMETEROL XINAFOATE
     Indication: Asthma
     Dosage: UNK, 125/50

REACTIONS (4)
  - Myocardial infarction [Unknown]
  - Cardiac operation [Unknown]
  - Stent placement [Unknown]
  - Viral infection [Unknown]
